FAERS Safety Report 6736644-1 (Version None)
Quarter: 2010Q2

REPORT INFORMATION
  Report Type: 
  Country: None (occurrence: None)
  Receive Date: 20100521
  Receipt Date: 20100511
  Transmission Date: 20101027
  Serious: Yes (Hospitalization)
  Sender: FDA-Public Use
  Company Number: US-ELI_LILLY_AND_COMPANY-US201005003250

PATIENT
  Sex: Male

DRUGS (2)
  1. EFFIENT [Suspect]
     Indication: PERCUTANEOUS CORONARY INTERVENTION
     Dosage: 60 MG, OTHER
  2. EFFIENT [Suspect]
     Dosage: 10 MG, DAILY (1/D)

REACTIONS (2)
  - THROMBOSIS IN DEVICE [None]
  - TREATMENT NONCOMPLIANCE [None]
